FAERS Safety Report 15675934 (Version 2)
Quarter: 2018Q4

REPORT INFORMATION
  Report Type: Report from Study
  Country: US (occurrence: US)
  Receive Date: 20181130
  Receipt Date: 20181204
  Transmission Date: 20190205
  Serious: No
  Sender: FDA-Public Use
  Company Number: PHEH2018US049795

PATIENT
  Sex: Female

DRUGS (1)
  1. COSENTYX [Suspect]
     Active Substance: SECUKINUMAB
     Indication: PRODUCT USED FOR UNKNOWN INDICATION
     Route: 042
     Dates: start: 20181114

REACTIONS (6)
  - Headache [Unknown]
  - Ear pain [Unknown]
  - Nasopharyngitis [Unknown]
  - Product use issue [Unknown]
  - Rhinorrhoea [Unknown]
  - Lacrimation increased [Unknown]
